FAERS Safety Report 25310240 (Version 1)
Quarter: 2025Q2

REPORT INFORMATION
  Report Type: Spontaneous
  Country: JP (occurrence: JP)
  Receive Date: 20250514
  Receipt Date: 20250514
  Transmission Date: 20250717
  Serious: Yes (Hospitalization, Other)
  Sender: RISING PHARMACEUTICALS
  Company Number: JP-RISINGPHARMA-JP-2025RISLIT00232

PATIENT
  Age: 8 Decade
  Sex: Male

DRUGS (4)
  1. DONEPEZIL HYDROCHLORIDE [Suspect]
     Active Substance: DONEPEZIL HYDROCHLORIDE
     Indication: Cognitive disorder
     Route: 065
  2. DONEPEZIL HYDROCHLORIDE [Suspect]
     Active Substance: DONEPEZIL HYDROCHLORIDE
     Route: 065
  3. RISPERIDONE [Suspect]
     Active Substance: RISPERIDONE
     Indication: Psychotic disorder
     Route: 065
  4. TRAZODONE [Suspect]
     Active Substance: TRAZODONE HYDROCHLORIDE
     Indication: Depression
     Route: 065

REACTIONS (9)
  - Neuroleptic malignant syndrome [Recovered/Resolved]
  - Drug interaction [Unknown]
  - Product use in unapproved indication [Unknown]
  - Somnolence [Recovered/Resolved]
  - Hyperpyrexia [Recovered/Resolved]
  - Muscle rigidity [Recovered/Resolved]
  - Blood creatine phosphokinase increased [Recovered/Resolved]
  - Autonomic nervous system imbalance [Recovered/Resolved]
  - Catatonia [Recovered/Resolved]
